FAERS Safety Report 15797475 (Version 1)
Quarter: 2019Q1

REPORT INFORMATION
  Report Type: Spontaneous
  Country: US (occurrence: US)
  Receive Date: 20190108
  Receipt Date: 20190108
  Transmission Date: 20190417
  Serious: Yes (Other)
  Sender: FDA-Public Use
  Company Number: US-TORRENT-00007391

PATIENT
  Sex: Male
  Weight: 68 kg

DRUGS (1)
  1. LOSARTAN POTASSIUM. [Suspect]
     Active Substance: LOSARTAN POTASSIUM
     Indication: HYPERTENSION
     Dosage: 1 TABLET ONCE A DAY
     Route: 048
     Dates: start: 2016, end: 2018

REACTIONS (4)
  - Weight decreased [Recovered/Resolved]
  - Dizziness [Recovered/Resolved]
  - Ill-defined disorder [Recovered/Resolved]
  - Decreased appetite [Recovered/Resolved]

NARRATIVE: CASE EVENT DATE: 2017
